FAERS Safety Report 18957111 (Version 1)
Quarter: 2021Q1

REPORT INFORMATION
  Report Type: Spontaneous
  Country: HK (occurrence: HK)
  Receive Date: 20210302
  Receipt Date: 20210302
  Transmission Date: 20210420
  Serious: Yes (Hospitalization, Other)
  Sender: FDA-Public Use
  Company Number: HK-UNICHEM PHARMACEUTICALS (USA) INC-UCM202102-000171

PATIENT
  Age: 9 Year
  Sex: Female

DRUGS (2)
  1. BACLOFEN. [Suspect]
     Active Substance: BACLOFEN
     Dosage: 1 ML PER DAY IN CONTINUOUS INFUSION MODE, DELIVERING A TOTAL OF 186 MCG PER DAY BACLOFEN
  2. BACLOFEN. [Suspect]
     Active Substance: BACLOFEN
     Indication: CEREBRAL PALSY
     Dosage: INTRATHECAL BACLOFEN PUMP
     Route: 037

REACTIONS (3)
  - Empyema [Recovered/Resolved]
  - Meningitis [Recovered/Resolved]
  - Dystonia [Recovered/Resolved]
